FAERS Safety Report 8091949-X (Version None)
Quarter: 2012Q1

REPORT INFORMATION
  Report Type: 
  Country: None (occurrence: None)
  Receive Date: 20120131
  Receipt Date: 20120124
  Transmission Date: 20120608
  Serious: Yes (Hospitalization)
  Sender: FDA-Public Use
  Company Number: PH-B.I. PHARMACEUTICALS,INC./RIDGEFIELD-2011-CS-00914RP

PATIENT
  Age: 66 Year
  Sex: Female

DRUGS (18)
  1. CLINDAMYCIN [Concomitant]
     Indication: PNEUMONIA
     Dates: start: 20110925, end: 20111003
  2. CIPROFLOXACIN [Concomitant]
     Indication: PNEUMONIA
     Dates: start: 20110928, end: 20111003
  3. PRADAXA [Suspect]
     Indication: CEREBROVASCULAR ACCIDENT PROPHYLAXIS
     Dosage: 110 MG
     Route: 048
     Dates: start: 20110923, end: 20110925
  4. METOPROLOL TARTRATE [Concomitant]
     Indication: HYPERTENSION
  5. MANNITOL [Concomitant]
     Indication: CEREBROVASCULAR ACCIDENT
     Dates: start: 20110901, end: 20110901
  6. CITICHOLINE [Concomitant]
     Indication: CEREBROVASCULAR ACCIDENT
     Dates: start: 20110901, end: 20110901
  7. PIPERACILLIN AND TAZOBACTAM [Concomitant]
     Indication: PNEUMONIA
     Dates: start: 20110929, end: 20111003
  8. SIMVASTATIN [Concomitant]
  9. RANITIDINE [Concomitant]
     Dates: start: 20110901, end: 20110901
  10. ASPIRIN [Concomitant]
     Indication: CEREBROVASCULAR ACCIDENT PROPHYLAXIS
  11. PRADAXA [Suspect]
     Dosage: 220 MG
     Route: 048
     Dates: start: 20110926, end: 20111007
  12. GABAPENTIN [Concomitant]
     Dates: start: 20111012
  13. AMLODIPINE [Concomitant]
     Indication: HYPERTENSION
  14. CLOPIDOGREL [Concomitant]
     Indication: CEREBROVASCULAR ACCIDENT PROPHYLAXIS
  15. GABAPENTIN [Concomitant]
     Indication: CONVULSION
     Dates: start: 20110924, end: 20111006
  16. LANOXIN [Concomitant]
     Indication: ATRIAL FIBRILLATION
     Dates: start: 20110901, end: 20110901
  17. CORDARONE [Concomitant]
     Indication: ATRIAL FIBRILLATION
     Dates: start: 20110901, end: 20110901
  18. TELMISARTAN [Concomitant]
     Indication: HYPERTENSION
     Dates: start: 20110901, end: 20110901

REACTIONS (2)
  - ERYTHEMA MULTIFORME [None]
  - PNEUMONIA [None]
